FAERS Safety Report 5723197-X (Version None)
Quarter: 2008Q2

REPORT INFORMATION
  Report Type: 
  Country: None (occurrence: None)
  Receive Date: 20080430
  Receipt Date: 20070604
  Transmission Date: 20081010
  Serious: No
  Sender: FDA-Public Use
  Company Number: US-BAUSCH-2007BL001822

PATIENT
  Age: 87 Year
  Sex: Female

DRUGS (3)
  1. CYCLOPENTOLATE HYDROCHLORIDE OPHTHALMIC SOLUTION USP 1% [Suspect]
     Indication: IRITIS
     Route: 047
     Dates: start: 20070507, end: 20070602
  2. PREDNISONE [Concomitant]
     Indication: IRITIS
     Route: 047
     Dates: start: 20070507
  3. SYNTHROID [Concomitant]
     Route: 048
     Dates: start: 19970101

REACTIONS (2)
  - DEPRESSION [None]
  - EYE IRRITATION [None]
